FAERS Safety Report 4861282-5 (Version None)
Quarter: 2005Q4

REPORT INFORMATION
  Report Type: 
  Country: None (occurrence: None)
  Receive Date: 20051220
  Receipt Date: 20051005
  Transmission Date: 20060501
  Serious: Yes (Hospitalization)
  Sender: FDA-Public Use
  Company Number: US-MERCK-0510USA05493

PATIENT
  Age: 47 Year
  Sex: Male
  Weight: 66 kg

DRUGS (5)
  1. VIOXX [Suspect]
     Indication: MUSCLE STRAIN
     Route: 048
     Dates: start: 20010501
  2. VIOXX [Suspect]
     Route: 048
     Dates: start: 20010501
  3. ALBUTEROL [Concomitant]
     Route: 065
  4. CLARINEX [Concomitant]
     Route: 065
  5. NASACORT [Concomitant]
     Route: 065

REACTIONS (18)
  - AMNESIA [None]
  - ANGINA UNSTABLE [None]
  - ANXIETY [None]
  - ASTHMA [None]
  - BACK PAIN [None]
  - CARDIOVASCULAR DISORDER [None]
  - CHEST PAIN [None]
  - CORONARY ARTERY DISEASE [None]
  - DEPRESSION [None]
  - EUSTACHIAN TUBE DYSFUNCTION [None]
  - HYPERLIPIDAEMIA [None]
  - MYOCARDIAL INFARCTION [None]
  - NASAL SEPTUM DEVIATION [None]
  - RHINITIS ALLERGIC [None]
  - SLEEP APNOEA SYNDROME [None]
  - SNORING [None]
  - STRESS [None]
  - VENTRICULAR TACHYCARDIA [None]
